FAERS Safety Report 5164180-5 (Version None)
Quarter: 2006Q4

REPORT INFORMATION
  Report Type: 
  Country: None (occurrence: None)
  Receive Date: 20060918
  Receipt Date: 20051101
  Transmission Date: 20070319
  Serious: Yes (Other)
  Sender: FDA-Public Use
  Company Number: US-JNJFOC-20050903408

PATIENT
  Age: 44 Year
  Sex: Female
  Weight: 138.3471 kg

DRUGS (2)
  1. TOPAMAX [Suspect]
     Indication: BIPOLAR DISORDER
     Dosage: 400 MG, IN 1 DAY, ORAL
     Route: 048
     Dates: start: 20030201
  2. TOPAMAX [Suspect]
     Indication: DRUG THERAPY
     Dosage: 400 MG, IN 1 DAY, ORAL
     Route: 048
     Dates: start: 20030201

REACTIONS (1)
  - WEIGHT DECREASED [None]
